FAERS Safety Report 22398546 (Version 1)
Quarter: 2023Q2

REPORT INFORMATION
  Report Type: Spontaneous
  Country: AU (occurrence: AU)
  Receive Date: 20230602
  Receipt Date: 20230602
  Transmission Date: 20230722
  Serious: Yes (Hospitalization, Other)
  Sender: FDA-Public Use
  Company Number: AU-GLAXOSMITHKLINE-AU2023APC072114

PATIENT

DRUGS (1)
  1. TRELEGY ELLIPTA [Suspect]
     Active Substance: FLUTICASONE FUROATE\UMECLIDINIUM BROMIDE\VILANTEROL TRIFENATATE
     Indication: Chronic obstructive pulmonary disease
     Dosage: UNK

REACTIONS (8)
  - Chronic obstructive pulmonary disease [Recovered/Resolved]
  - Pseudomonas infection [Unknown]
  - Foreign body in throat [Unknown]
  - Oral candidiasis [Unknown]
  - Throat irritation [Unknown]
  - Total lung capacity decreased [Unknown]
  - Oropharyngeal candidiasis [Unknown]
  - Stomatitis [Unknown]
